FAERS Safety Report 14390691 (Version 1)
Quarter: 2018Q1

REPORT INFORMATION
  Report Type: Spontaneous
  Country: GB (occurrence: GB)
  Receive Date: 20180116
  Receipt Date: 20180116
  Transmission Date: 20180509
  Serious: Yes (Other)
  Sender: FDA-Public Use
  Company Number: GB-CIPLA LTD.-2018GB00763

PATIENT

DRUGS (6)
  1. VINCRISTINE [Suspect]
     Active Substance: VINCRISTINE
     Indication: RETINOBLASTOMA
     Dosage: UNK, SIX CYCLES
     Route: 065
  2. CARBOPLATIN. [Suspect]
     Active Substance: CARBOPLATIN
     Indication: RETINOBLASTOMA
     Dosage: UNK, SIX CYCLES
     Route: 065
  3. MELPHALAN. [Suspect]
     Active Substance: MELPHALAN
     Indication: RETINOBLASTOMA
     Dosage: 4 MG, UNK
     Route: 013
  4. MELPHALAN. [Suspect]
     Active Substance: MELPHALAN
     Indication: REFRACTORY CANCER
     Dosage: 4 MG, UNK
     Route: 013
  5. MELPHALAN. [Suspect]
     Active Substance: MELPHALAN
     Dosage: 5 MG, UNK
     Route: 013
  6. ETOPOSIDE. [Suspect]
     Active Substance: ETOPOSIDE
     Indication: RETINOBLASTOMA
     Dosage: UNK, SIX CYCLES
     Route: 065

REACTIONS (2)
  - Retinoblastoma [Unknown]
  - Disease progression [Unknown]
